FAERS Safety Report 17582241 (Version 1)
Quarter: 2020Q1

REPORT INFORMATION
  Report Type: Report from Study
  Country: IT (occurrence: IT)
  Receive Date: 20200325
  Receipt Date: 20200325
  Transmission Date: 20200409
  Serious: Yes (Other)
  Sender: FDA-Public Use
  Company Number: IT-JNJFOC-20200331777

PATIENT
  Age: 78 Year
  Sex: Male

DRUGS (5)
  1. MEMANTINE HYDROCHLORIDE. [Concomitant]
     Active Substance: MEMANTINE HYDROCHLORIDE
  2. FUROSEMIDE;TRIAMTERENE [Concomitant]
     Active Substance: FUROSEMIDE\TRIAMTERENE
     Dosage: UNK
  3. XARELTO [Suspect]
     Active Substance: RIVAROXABAN
     Indication: PULMONARY EMBOLISM
     Dosage: 20 MG, QD
     Route: 048
     Dates: start: 20160302
  4. METFORMIN [Concomitant]
     Active Substance: METFORMIN HYDROCHLORIDE
     Dosage: UNK
  5. CARDIOASPIRIN [Interacting]
     Active Substance: ASPIRIN
     Indication: PULMONARY EMBOLISM
     Dosage: 100 MG, QD
     Route: 048
     Dates: start: 20160302

REACTIONS (3)
  - Oedema peripheral [Recovering/Resolving]
  - Drug interaction [Recovering/Resolving]
  - Pain in extremity [Recovering/Resolving]

NARRATIVE: CASE EVENT DATE: 20200210
